FAERS Safety Report 7231858 (Version 10)
Quarter: 2014Q4

REPORT INFORMATION
  Report Type: Report from Study
  Country: FR (occurrence: FR)
  Receive Date: 20091228
  Receipt Date: 20141124
  Transmission Date: 20150529
  Serious: Yes (Hospitalization, Other)
  Sender: FDA-Public Use
  Company Number: FR-ROCHE-674647

PATIENT
  Age: 14 Year
  Sex: Female
  Weight: 51.4 kg

DRUGS (8)
  1. ACTINOMYCIN D [Suspect]
     Active Substance: DACTINOMYCIN
     Indication: SOFT TISSUE SARCOMA
     Dosage: FORM: 1.5 MG/M2.  THE MOST RECENT DOSE WAS 19/DEC/2009
     Route: 042
  2. VINCRISTINE [Suspect]
     Active Substance: VINCRISTINE
     Route: 042
     Dates: start: 20091211, end: 20100102
  3. MORPHINE SULFATE. [Concomitant]
     Active Substance: MORPHINE SULFATE
     Route: 065
     Dates: start: 20100103, end: 20100108
  4. BEVACIZUMAB [Suspect]
     Active Substance: BEVACIZUMAB
     Indication: SOFT TISSUE SARCOMA
     Dosage: FORM REPORTED AS: 7.5 MG/KG. LAST DOSE PRIOR TO SAE 19/DEC/2009
     Route: 042
  5. IFOSFAMIDE. [Suspect]
     Active Substance: IFOSFAMIDE
     Indication: SOFT TISSUE SARCOMA
     Dosage: DOSE FORM: 6G/M2.?LAST DOSE PRIOR TO SAE ON  20/DEC/2009
     Route: 042
  6. DOXORUBICINE [Suspect]
     Active Substance: DOXORUBICIN
     Indication: SOFT TISSUE SARCOMA
     Dosage: FORM: 30MG/M2. LAST DOSE PRIOR TO SAE: 20/DEC/2009
     Route: 042
  7. VINCRISTINE [Suspect]
     Active Substance: VINCRISTINE
     Indication: SOFT TISSUE SARCOMA
     Dosage: FORM: 1.5 MG/M2. TEMPORARILY STOPPED.?LAST DOSE PRIOR TO SAE ON 26/DEC/2009
     Route: 042
  8. VINCRISTINE [Suspect]
     Active Substance: VINCRISTINE
     Route: 042

REACTIONS (7)
  - Vomiting [Recovered/Resolved]
  - Anaemia [Recovered/Resolved]
  - Pneumothorax [Recovered/Resolved]
  - Epistaxis [Recovered/Resolved]
  - Weight decreased [Not Recovered/Not Resolved]
  - Febrile neutropenia [Recovered/Resolved]
  - Mucosal inflammation [Not Recovered/Not Resolved]

NARRATIVE: CASE EVENT DATE: 20091130
